FAERS Safety Report 9254571 (Version 1)
Quarter: 2013Q2

REPORT INFORMATION
  Report Type: Spontaneous
  Country: US (occurrence: US)
  Receive Date: 20130425
  Receipt Date: 20130425
  Transmission Date: 20140414
  Serious: No
  Sender: FDA-Public Use
  Company Number: US-009507513-1304USA015088

PATIENT
  Age: 65 Year
  Sex: Female

DRUGS (1)
  1. JANUVIA [Suspect]
     Indication: BLOOD GLUCOSE INCREASED
     Dosage: UNK, QD
     Route: 048
     Dates: start: 201303

REACTIONS (4)
  - Vision blurred [Unknown]
  - Glaucoma [Unknown]
  - Headache [Unknown]
  - Abdominal discomfort [Unknown]
